FAERS Safety Report 7499642-9 (Version None)
Quarter: 2011Q2

REPORT INFORMATION
  Report Type: 
  Country: None (occurrence: None)
  Receive Date: 20110524
  Receipt Date: 20110514
  Transmission Date: 20111010
  Serious: Yes (Hospitalization)
  Sender: FDA-Public Use
  Company Number: US-ROCHE-744712

PATIENT
  Sex: Female
  Weight: 58.5 kg

DRUGS (10)
  1. GLIPIZIDE [Concomitant]
     Dates: start: 20091216
  2. PROMETHAZINE [Concomitant]
  3. LISINOPRIL AND HYDROCHLOROTHIAZIDE [Concomitant]
  4. PEGASYS [Concomitant]
     Dates: start: 20100723
  5. METFORMIN HCL [Concomitant]
     Dates: start: 20091216
  6. ULTRAM [Concomitant]
     Dates: start: 20100820
  7. XANAX [Concomitant]
     Dates: start: 20100917
  8. RIBAVIRIN [Suspect]
     Indication: HEPATITIS C
     Dosage: 600 MG IN MORNING AND 400 MG IN EVENING
     Route: 048
     Dates: start: 20100723
  9. PF-00868554 (HCV POLYMERASE INHIBITOR) [Suspect]
     Indication: HEPATITIS C
     Route: 048
  10. BENADRYL [Concomitant]
     Dates: start: 20100820

REACTIONS (1)
  - VERTIGO [None]
